FAERS Safety Report 4724503-5 (Version None)
Quarter: 2005Q3

REPORT INFORMATION
  Report Type: 
  Country: None (occurrence: None)
  Receive Date: 20050726
  Receipt Date: 20050131
  Transmission Date: 20060218
  Serious: Yes (Disabling)
  Sender: FDA-Public Use
  Company Number: ES-BRISTOL-MYERS SQUIBB COMPANY-12844312

PATIENT
  Age: 87 Year
  Sex: Male
  Weight: 70 kg

DRUGS (4)
  1. BLINDED: IRBESARTAN [Suspect]
     Indication: HYPERTENSION
     Dates: start: 20041108
  2. BLINDED: PLACEBO [Suspect]
     Indication: HYPERTENSION
     Dates: start: 20041108
  3. BLINDED: CLOPIDOGREL BISULFATE [Suspect]
     Indication: PROPHYLAXIS
     Dates: start: 20041118
  4. ASPIRIN [Suspect]
     Indication: PROPHYLAXIS
     Dates: start: 20041118

REACTIONS (1)
  - HAEMORRHAGE [None]
